FAERS Safety Report 16677003 (Version 2)
Quarter: 2019Q3

REPORT INFORMATION
  Report Type: Spontaneous
  Country: PL (occurrence: PL)
  Receive Date: 20190807
  Receipt Date: 20190827
  Transmission Date: 20191004
  Serious: Yes (Death)
  Sender: FDA-Public Use
  Company Number: PL-ACCORD-150443

PATIENT
  Age: 65 Year
  Sex: Female

DRUGS (17)
  1. ZOLEDRONIC ACID [Suspect]
     Active Substance: ZOLEDRONIC ACID
     Indication: BREAST CANCER METASTATIC
     Dosage: 4 MG, EVERY 28 DAYS
     Route: 042
  2. HYDROXYZINE [Suspect]
     Active Substance: HYDROXYZINE HYDROCHLORIDE
     Indication: ANXIETY
     Dosage: 25 MG, DAILY
     Route: 065
  3. MORPHINE [Suspect]
     Active Substance: MORPHINE
     Indication: PAIN MANAGEMENT
     Dosage: 10 MG, 2-3 TIMES DAILY
     Route: 065
  4. MORPHINE [Suspect]
     Active Substance: MORPHINE
     Indication: PAIN MANAGEMENT
     Dosage: 10 MG, 2-3 TIMES DAILY,30 MG, BID
     Route: 065
  5. FENTANYL. [Suspect]
     Active Substance: FENTANYL
     Indication: BREAKTHROUGH PAIN
     Dosage: 400 MCG, UNK,ALSO 100  MICROGRAM ON AUG-2018
     Route: 045
  6. OXYCODONE [Suspect]
     Active Substance: OXYCODONE
     Indication: PAIN MANAGEMENT
     Route: 065
  7. MIDAZOLAM [Suspect]
     Active Substance: MIDAZOLAM HYDROCHLORIDE
     Indication: ANXIETY
     Dosage: 7.5 MG, UNK
     Route: 048
  8. ENOXAPARIN [Suspect]
     Active Substance: ENOXAPARIN
     Indication: PRODUCT USED FOR UNKNOWN INDICATION
     Dosage: 20 MG, Q24H
     Route: 065
  9. EPERISONE [Concomitant]
     Active Substance: EPERISONE
     Indication: CANCER PAIN
     Dosage: UNK UNK, Q24H
     Route: 065
  10. NALOXONE [Concomitant]
     Active Substance: NALOXONE
  11. FENTANYL CITRATE. [Suspect]
     Active Substance: FENTANYL CITRATE
     Indication: BREAKTHROUGH PAIN
     Dosage: 100 MCG, UNK
     Route: 045
     Dates: start: 201808
  12. PAMIDRONATE DISODIUM/PAMIDRONIC ACID [Suspect]
     Active Substance: PAMIDRONATE DISODIUM
     Indication: BREAST CANCER METASTATIC
     Dosage: 90 MG, EVERY 28 DAYS
     Route: 042
  13. PARACETAMOL [Concomitant]
     Active Substance: ACETAMINOPHEN
     Indication: CANCER PAIN
     Dosage: 650 MG, Q8H
  14. TAMOXIFEN [Suspect]
     Active Substance: TAMOXIFEN
     Indication: BREAST CANCER METASTATIC
     Dosage: 20 MG, DAILY
     Route: 048
  15. TRAMADOL. [Suspect]
     Active Substance: TRAMADOL
     Indication: PAIN MANAGEMENT
     Dosage: 75 MG, Q8H
     Route: 048
  16. ZOLPIDEM [Suspect]
     Active Substance: ZOLPIDEM TARTRATE
     Indication: PAIN MANAGEMENT
     Dosage: 10 MG, NOCTE
     Route: 065
  17. OXYCODONE/NALOXONE [Suspect]
     Active Substance: NALOXONE HYDROCHLORIDE\OXYCODONE HYDROCHLORIDE
     Indication: PAIN MANAGEMENT
     Dosage: Q12H (STRENGTH 10 MG/5MG)
     Route: 065

REACTIONS (11)
  - Breakthrough pain [Fatal]
  - Malignant neoplasm progression [Fatal]
  - Anxiety [Fatal]
  - Metastases to bone [Fatal]
  - Constipation [Fatal]
  - Disturbance in attention [Fatal]
  - Asthenia [Fatal]
  - Off label use [Unknown]
  - Breast cancer metastatic [Fatal]
  - General physical health deterioration [Fatal]
  - Sedation [Fatal]
